FAERS Safety Report 4837895-3 (Version None)
Quarter: 2005Q4

REPORT INFORMATION
  Report Type: 
  Country: None (occurrence: None)
  Receive Date: 20051128
  Receipt Date: 20051121
  Transmission Date: 20060501
  Serious: Yes (Other)
  Sender: FDA-Public Use
  Company Number: 2005SE06713

PATIENT
  Age: 15892 Day
  Sex: Female
  Weight: 76.5 kg

DRUGS (3)
  1. NEXIUM [Suspect]
     Indication: OESOPHAGITIS
     Dosage: 20 MG - 40 MG
     Route: 048
     Dates: start: 20050706, end: 20050920
  2. CIPRALEX [Concomitant]
     Indication: DEPRESSION
  3. SINGULAIR [Concomitant]
     Indication: ASTHMA

REACTIONS (2)
  - ECZEMA [None]
  - PRURITUS GENERALISED [None]
